FAERS Safety Report 8952736 (Version 2)
Quarter: 2015Q1

REPORT INFORMATION
  Report Type: Report from Study
  Country: FR (occurrence: FR)
  Receive Date: 20121205
  Receipt Date: 20150220
  Transmission Date: 20150721
  Serious: Yes (Death, Hospitalization, Other)
  Sender: FDA-Public Use
  Company Number: FR-ROCHE-1163487

PATIENT
  Age: 68 Year
  Sex: Male

DRUGS (3)
  1. RITUXIMAB [Suspect]
     Active Substance: RITUXIMAB
     Indication: RHEUMATOID ARTHRITIS
     Dosage: D1
     Route: 042
     Dates: start: 20080702
  2. CORTANCYL [Concomitant]
     Active Substance: PREDNISONE
     Route: 065
     Dates: start: 20080908
  3. RITUXIMAB [Suspect]
     Active Substance: RITUXIMAB
     Dosage: D15
     Route: 042
     Dates: start: 20080908

REACTIONS (11)
  - Femur fracture [Fatal]
  - Bronchopneumonia [Unknown]
  - Fall [Fatal]
  - Chronic obstructive pulmonary disease [Recovered/Resolved]
  - Vomiting [Fatal]
  - Acute pulmonary oedema [Recovered/Resolved]
  - Skin infection [Unknown]
  - Aspiration [Fatal]
  - Hyperkalaemia [Recovered/Resolved]
  - Respiratory arrest [Fatal]
  - Cardiopulmonary failure [Unknown]

NARRATIVE: CASE EVENT DATE: 20080825
